FAERS Safety Report 11320705 (Version 1)
Quarter: 2015Q3

REPORT INFORMATION
  Report Type: Spontaneous
  Country: US (occurrence: None)
  Receive Date: 20150728
  Receipt Date: 20150728
  Transmission Date: 20151125
  Serious: Yes (Hospitalization)
  Sender: FDA-Public Use
  Company Number: None

PATIENT
  Age: 69 Year
  Sex: Male
  Weight: 98.2 kg

DRUGS (2)
  1. OXYCODONE [Suspect]
     Active Substance: OXYCODONE
     Indication: PAIN
     Dosage: 5 MG UD PO
     Route: 048
     Dates: start: 20030603
  2. ALPRAZOLAM. [Suspect]
     Active Substance: ALPRAZOLAM
     Dosage: 0.25 MG UD PO
     Route: 048
     Dates: start: 20000228

REACTIONS (2)
  - Incorrect dose administered [None]
  - Sedation [None]

NARRATIVE: CASE EVENT DATE: 20140728
